FAERS Safety Report 8356467-X (Version None)
Quarter: 2012Q2

REPORT INFORMATION
  Report Type: 
  Country: None (occurrence: None)
  Receive Date: 20120511
  Receipt Date: 20120511
  Transmission Date: 20120825
  Serious: No
  Sender: FDA-Public Use
  Company Number: None

PATIENT
  Age: 56 Year
  Sex: Female
  Weight: 70.3075 kg

DRUGS (2)
  1. XALATAN [Suspect]
     Indication: GLAUCOMA
     Dosage: 1 DROP AT BEDTIME EVERY DAY
     Dates: start: 20040604, end: 20101208
  2. LATANOPROST [Suspect]
     Indication: GLAUCOMA
     Dosage: 1 DROP AT BEDTIME EVERYDAY
     Dates: start: 20110108, end: 20120509

REACTIONS (7)
  - HEPATIC ENZYME INCREASED [None]
  - ARTHRALGIA [None]
  - INSOMNIA [None]
  - ACTIVITIES OF DAILY LIVING IMPAIRED [None]
  - PAIN [None]
  - ABDOMINAL DISCOMFORT [None]
  - MYALGIA [None]
